FAERS Safety Report 17520416 (Version 3)
Quarter: 2021Q3

REPORT INFORMATION
  Report Type: Report from Study
  Country: US (occurrence: US)
  Receive Date: 20200310
  Receipt Date: 20210823
  Transmission Date: 20211014
  Serious: Yes (Hospitalization)
  Sender: FDA-Public Use
  Company Number: US-EISAI MEDICAL RESEARCH-EC-2020-069391

PATIENT
  Age: 58 Year
  Sex: Female
  Weight: 63.04 kg

DRUGS (19)
  1. LENVIMA [Suspect]
     Active Substance: LENVATINIB
     Indication: ENDOMETRIAL CANCER
     Route: 048
     Dates: start: 2020, end: 2020
  2. DAILY VITE [Concomitant]
     Active Substance: VITAMINS
  3. LENVIMA [Suspect]
     Active Substance: LENVATINIB
     Indication: UTERINE CANCER
     Route: 048
     Dates: start: 20200129, end: 2020
  4. KEYTRUDA [Suspect]
     Active Substance: PEMBROLIZUMAB
     Indication: PRODUCT USED FOR UNKNOWN INDICATION
     Dosage: FREQUENCY AND DOSING NOT PROVIDED
     Route: 042
     Dates: end: 202101
  5. VITAMIN D3 [Concomitant]
     Active Substance: CHOLECALCIFEROL
  6. FIBER [Concomitant]
     Active Substance: PSYLLIUM HUSK
  7. GARLIC. [Concomitant]
     Active Substance: GARLIC
  8. NITROFURANTOIN. [Concomitant]
     Active Substance: NITROFURANTOIN
  9. NUTRISOURCE FIBER [Concomitant]
  10. LENVIMA [Suspect]
     Active Substance: LENVATINIB
     Route: 048
     Dates: start: 2020, end: 202101
  11. FISH OIL [Concomitant]
     Active Substance: FISH OIL
  12. ATENOLOL. [Concomitant]
     Active Substance: ATENOLOL
  13. VITAMIN C [Concomitant]
     Active Substance: ASCORBIC ACID
  14. VITAMIN B COMPLEX [Concomitant]
     Active Substance: CYANOCOBALAMIN\DEXPANTHENOL\NIACINAMIDE\PYRIDOXINE HYDROCHLORIDE\RIBOFLAVIN 5^-PHOSPHATE SODIUM\THIAMINE HYDROCHLORIDE\VITAMIN B COMPLEX
  15. CLOTRIMAZOLE AND BETAMETHASONE DIPROPIONATE [Concomitant]
     Active Substance: BETAMETHASONE\BETAMETHASONE DIPROPIONATE\CLOTRIMAZOLE
  16. PROBIOTIC AND ACIDOPHILUS [Concomitant]
  17. LENVIMA [Suspect]
     Active Substance: LENVATINIB
     Route: 048
     Dates: start: 2021
  18. MULTIVITAMINS [Concomitant]
     Active Substance: VITAMINS
  19. LISINOPRIL. [Concomitant]
     Active Substance: LISINOPRIL
     Dates: end: 202108

REACTIONS (37)
  - Headache [Unknown]
  - Epistaxis [Unknown]
  - Nasal discomfort [Unknown]
  - Arthralgia [Unknown]
  - Pain in extremity [Not Recovered/Not Resolved]
  - Fatigue [Unknown]
  - Rash [Unknown]
  - Atrial enlargement [Unknown]
  - Palpitations [Unknown]
  - Hypertension [Unknown]
  - Vaginal haemorrhage [Unknown]
  - Diarrhoea [Not Recovered/Not Resolved]
  - Nausea [Unknown]
  - Toothache [Unknown]
  - Decreased appetite [Unknown]
  - Skin atrophy [Unknown]
  - Abdominal pain [Recovered/Resolved]
  - Eructation [Unknown]
  - Vein disorder [Unknown]
  - Blood urine present [Recovered/Resolved]
  - Nasal dryness [Unknown]
  - Back pain [Unknown]
  - Flatulence [Unknown]
  - Cough [Unknown]
  - Dry skin [Unknown]
  - Nail bed tenderness [Unknown]
  - Blood thyroid stimulating hormone increased [Unknown]
  - Urinary tract infection [Unknown]
  - Faeces soft [Unknown]
  - Weight decreased [Unknown]
  - Asthenia [Unknown]
  - Pruritus [Unknown]
  - Haematochezia [Unknown]
  - Dysphonia [Unknown]
  - Bone pain [Unknown]
  - Haemorrhage [Unknown]
  - Skin disorder [Unknown]

NARRATIVE: CASE EVENT DATE: 2020
